FAERS Safety Report 6181188-1 (Version None)
Quarter: 2009Q2

REPORT INFORMATION
  Report Type: 
  Country: None (occurrence: None)
  Receive Date: 20090504
  Receipt Date: 20090423
  Transmission Date: 20091009
  Serious: Yes (Other)
  Sender: FDA-Public Use
  Company Number: UKP09000086

PATIENT
  Age: 71 Year
  Sex: Female

DRUGS (9)
  1. ACTONEL [Suspect]
     Dosage: 35 MG, 1 ONLY, ORAL
     Route: 048
     Dates: start: 20080601, end: 20080602
  2. BONIVA [Suspect]
     Dosage: 150 MG, 1/MONTH
     Dates: start: 20080608
  3. FOSAMAX [Suspect]
     Dosage: 70 MG, 1/WEEK
     Dates: start: 20080315, end: 20080513
  4. SOTALOL HCL [Concomitant]
  5. CALCI CHEW D3 /00944201/ (CALCIUM CARBONATE, COLECALCIFEROL) [Concomitant]
  6. COZAAR [Concomitant]
  7. NIFEDIPINE PCH (NIFEDIPINE) [Concomitant]
  8. PANTOZOL /01263202/ (PANTOPRAZOLE SODIUM) [Concomitant]
  9. ASCAL CARDIO (CARBASALATE CALCIUM) [Concomitant]

REACTIONS (2)
  - CHEST PAIN [None]
  - PALPITATIONS [None]
